FAERS Safety Report 25737801 (Version 1)
Quarter: 2025Q3

REPORT INFORMATION
  Report Type: Spontaneous
  Country: US (occurrence: US)
  Receive Date: 20250828
  Receipt Date: 20250828
  Transmission Date: 20251021
  Serious: No
  Sender: COLLEGIUM PHARMACEUTICAL
  Company Number: US-COLLEGIUM PHARMACEUTICAL, INC.-20250802425

PATIENT

DRUGS (3)
  1. JORNAY PM EXTENDED-RELEASE [Suspect]
     Active Substance: METHYLPHENIDATE HYDROCHLORIDE
     Indication: Narcolepsy
     Route: 048
     Dates: start: 2020, end: 20250607
  2. TOPAMAX [Concomitant]
     Active Substance: TOPIRAMATE
     Indication: Sleep terror
     Route: 065
  3. TOPAMAX [Concomitant]
     Active Substance: TOPIRAMATE
     Indication: Narcolepsy

REACTIONS (3)
  - Inability to afford medication [Not Recovered/Not Resolved]
  - Off label use [Not Recovered/Not Resolved]
  - Product dose omission issue [Not Recovered/Not Resolved]

NARRATIVE: CASE EVENT DATE: 20200101
